FAERS Safety Report 20893673 (Version 1)
Quarter: 2022Q2

REPORT INFORMATION
  Report Type: Spontaneous
  Country: US (occurrence: None)
  Receive Date: 20220527
  Receipt Date: 20220527
  Transmission Date: 20220721
  Serious: Yes (Hospitalization)
  Sender: FDA-Public Use
  Company Number: None

PATIENT
  Sex: Female

DRUGS (2)
  1. LEUPROLIDE ACETATE [Suspect]
     Active Substance: LEUPROLIDE ACETATE
     Indication: Infertility female
     Dosage: FREQUENCY : ONCE;?
     Route: 058
     Dates: start: 20220425
  2. OVIDREL [Suspect]
     Active Substance: CHORIOGONADOTROPIN ALFA
     Indication: Infertility female
     Dosage: OTHER QUANTITY : 250 MCG;?FREQUENCY : ONCE;?
     Route: 058
     Dates: start: 20220518, end: 20220525

REACTIONS (2)
  - Ovarian hyperstimulation syndrome [None]
  - Angioedema [None]

NARRATIVE: CASE EVENT DATE: 20220501
